FAERS Safety Report 4473061-1 (Version None)
Quarter: 2004Q4

REPORT INFORMATION
  Report Type: 
  Country: None (occurrence: None)
  Receive Date: 20041013
  Receipt Date: 20040920
  Transmission Date: 20050328
  Serious: Yes (Life-Threatening, Hospitalization)
  Sender: FDA-Public Use
  Company Number: TZ-GLAXOSMITHKLINE-B0345862A

PATIENT
  Age: 38 Year
  Sex: Female
  Weight: 49 kg

DRUGS (3)
  1. TRIZIVIR [Suspect]
     Indication: HIV INFECTION
     Dosage: 1TAB TWICE PER DAY
     Route: 048
     Dates: start: 20040706, end: 20040917
  2. ISONIAZID [Concomitant]
     Dosage: 300MG PER DAY
     Route: 048
  3. ETHAMBUTOL HCL [Concomitant]
     Dosage: 1200MG PER DAY
     Route: 048

REACTIONS (28)
  - ABDOMINAL ADHESIONS [None]
  - ABDOMINAL DISTENSION [None]
  - ANOREXIA [None]
  - CARDIAC FAILURE CONGESTIVE [None]
  - CONSTIPATION [None]
  - CREPITATIONS [None]
  - CYANOSIS [None]
  - DRUG HYPERSENSITIVITY [None]
  - DYSPNOEA [None]
  - GALLOP RHYTHM PRESENT [None]
  - GANGRENE [None]
  - IMMUNE RECONSTITUTION SYNDROME [None]
  - INTESTINAL ANASTOMOSIS [None]
  - INTESTINAL OBSTRUCTION [None]
  - JEJUNECTOMY [None]
  - LUNG INFILTRATION [None]
  - NAUSEA [None]
  - OEDEMA [None]
  - OEDEMA PERIPHERAL [None]
  - PNEUMONIA [None]
  - PNEUMONITIS [None]
  - PRODUCTIVE COUGH [None]
  - PYREXIA [None]
  - TACHYCARDIA [None]
  - TUBERCULOSIS [None]
  - VENOUS PRESSURE JUGULAR INCREASED [None]
  - VOMITING [None]
  - WHITE BLOOD CELL COUNT ABNORMAL [None]
